FAERS Safety Report 17305270 (Version 1)
Quarter: 2020Q1

REPORT INFORMATION
  Report Type: Spontaneous
  Country: US (occurrence: US)
  Receive Date: 20200106
  Receipt Date: 20200106
  Transmission Date: 20200409
  Serious: No
  Sender: FDA-Public Use
  Company Number: None

PATIENT
  Age: 15 Year
  Sex: Male

DRUGS (1)
  1. HUMIRA [Suspect]
     Active Substance: ADALIMUMAB
     Indication: ILL-DEFINED DISORDER
     Dosage: ?          OTHER DOSE:40MG/0.4ML;OTHER FREQUENCY:40MG EVERY 14 DAYS;?
     Route: 058
     Dates: start: 20191119

REACTIONS (3)
  - Anal fistula [None]
  - Rectal haemorrhage [None]
  - Diarrhoea [None]

NARRATIVE: CASE EVENT DATE: 20191212
